FAERS Safety Report 15037566 (Version 3)
Quarter: 2018Q4

REPORT INFORMATION
  Report Type: Spontaneous
  Country: SK (occurrence: SK)
  Receive Date: 20180620
  Receipt Date: 20181106
  Transmission Date: 20190204
  Serious: Yes (Other)
  Sender: FDA-Public Use
  Company Number: SK-MYLANLABS-2018M1016457

PATIENT
  Age: 62 Year
  Sex: Female

DRUGS (13)
  1. RITUXIMAB. [Suspect]
     Active Substance: RITUXIMAB
     Dosage: UNK
     Route: 042
  2. LEVACT [Suspect]
     Active Substance: BENDAMUSTINE HYDROCHLORIDE
     Dosage: 2 MG, UNK
     Route: 042
  3. RITUXIMAB. [Suspect]
     Active Substance: RITUXIMAB
     Indication: B-CELL LYMPHOMA
     Dosage: SECOND DOSE
     Route: 058
  4. BISULEPIN [Suspect]
     Active Substance: BISULEPIN
     Dosage: 2 MG, UNKNOWN FREQ. (1/2 HOURS PRIOR TO THE ADMINISTRATION)
     Route: 042
  5. DEXAMETHASONE. [Concomitant]
     Active Substance: DEXAMETHASONE
     Dosage: 48 DF, HALF HOUR BEFORE CHEMOTHERAPY ADMINISTRATION
     Route: 042
  6. BENDAMUSTINE HYDROCHLORIDE. [Suspect]
     Active Substance: BENDAMUSTINE HYDROCHLORIDE
     Dosage: UNK, TWO ADMINISTRATIONS
     Route: 058
  7. BENDAMUSTINE HYDROCHLORIDE. [Suspect]
     Active Substance: BENDAMUSTINE HYDROCHLORIDE
     Indication: B-CELL LYMPHOMA
     Dosage: UNK, TWO ADMINISTRATIONS
     Route: 042
  8. DEXAMETHASONE. [Concomitant]
     Active Substance: DEXAMETHASONE
     Indication: B-CELL LYMPHOMA
     Dosage: 24 DF, HALF HOUR BEFORE CHEMOTHERAPY ADMINISTRATION
     Route: 042
  9. BISULEPIN [Suspect]
     Active Substance: BISULEPIN
     Dosage: 4 MG, HALF HOUR BEFORE CHEMOTHERAPY ADMINISTRATION
     Route: 042
  10. DEXAMETHASONE. [Concomitant]
     Active Substance: DEXAMETHASONE
     Dosage: 24 MG, UNK (24 MG, UNKNOWN FREQ. (1/2 HOURS PRIOR TO THE ADMINISTRATION)
     Route: 042
  11. IBUPROFEN. [Suspect]
     Active Substance: IBUPROFEN
     Indication: PRODUCT USED FOR UNKNOWN INDICATION
     Dosage: 400 MG, HALF HOUR BEFORE CHEMOTHERAPY ADMINISTRATION
     Route: 048
  12. BISULEPIN [Suspect]
     Active Substance: BISULEPIN
     Indication: PRODUCT USED FOR UNKNOWN INDICATION
     Dosage: 2 MG, HALF HOUR BEFORE CHEMOTHERAPY ADMINISTRATION
     Route: 042
  13. LEVACT [Suspect]
     Active Substance: BENDAMUSTINE HYDROCHLORIDE
     Indication: B-CELL LYMPHOMA
     Dosage: UNK, CYCLE
     Route: 058

REACTIONS (9)
  - Application site rash [Recovered/Resolved]
  - Abdominal pain lower [Recovered/Resolved]
  - Rash pruritic [Recovered/Resolved]
  - Incorrect route of product administration [Unknown]
  - Abdominal migraine [Recovered/Resolved]
  - Rash [Recovered/Resolved]
  - Injection site rash [Recovered/Resolved]
  - Abdominal pain [Recovered/Resolved]
  - Application site pruritus [Recovered/Resolved]
